FAERS Safety Report 8290814-2 (Version None)
Quarter: 2012Q2

REPORT INFORMATION
  Report Type: 
  Country: None (occurrence: None)
  Receive Date: 20120417
  Receipt Date: 20110420
  Transmission Date: 20120825
  Serious: No
  Sender: FDA-Public Use
  Company Number: US-BRISTOL-MYERS SQUIBB COMPANY-15689607

PATIENT
  Age: 74 Year
  Sex: Male
  Weight: 78 kg

DRUGS (9)
  1. HYDREA [Suspect]
     Route: 048
     Dates: start: 20101015
  2. LOVAZA [Concomitant]
     Dates: start: 20090908
  3. PLAVIX [Concomitant]
     Dosage: 08SEP09-UNK,15OCT10-UNK(75MG)
     Route: 048
     Dates: start: 20090908
  4. NEUPOGEN [Concomitant]
     Indication: WHITE BLOOD CELL COUNT DECREASED
  5. BLOOD TRANSFUSION [Concomitant]
     Indication: RED BLOOD CELL COUNT DECREASED
  6. REVLIMID [Suspect]
     Indication: MYELODYSPLASTIC SYNDROME
     Route: 048
     Dates: start: 20100901
  7. AZACITIDINE [Suspect]
     Indication: MYELODYSPLASTIC SYNDROME
  8. LASIX [Concomitant]
     Dosage: SEP09-UNK 20JAN10-UNK-20MG
     Route: 048
     Dates: start: 20090901
  9. ASPIRIN [Concomitant]
     Dosage: 08SEP09-UNK,15OCT10-UNK
     Route: 048
     Dates: start: 20090908

REACTIONS (2)
  - RED BLOOD CELL COUNT DECREASED [None]
  - WHITE BLOOD CELL COUNT DECREASED [None]
